FAERS Safety Report 22640569 (Version 1)
Quarter: 2023Q2

REPORT INFORMATION
  Report Type: Spontaneous
  Country: PL (occurrence: PL)
  Receive Date: 20230626
  Receipt Date: 20230626
  Transmission Date: 20230721
  Serious: Yes (Other)
  Sender: FDA-Public Use
  Company Number: PL-TEVA-2023-PL-2899010

PATIENT
  Age: 32 Year
  Sex: Female

DRUGS (9)
  1. SERTRALINE [Suspect]
     Active Substance: SERTRALINE HYDROCHLORIDE
     Indication: Pain
     Dosage: 50 MILLIGRAM DAILY; 50 MG IN THE MORNING
     Route: 065
  2. HYDROXYZINE [Suspect]
     Active Substance: HYDROXYZINE HYDROCHLORIDE
     Indication: Pain
     Dosage: 25 MILLIGRAM DAILY; 25 MG AT NIGHT
     Route: 065
  3. OXYCODONE [Suspect]
     Active Substance: OXYCODONE
     Indication: Pain
     Dosage: GRADUALLY INCREASING DOSE, TO REACH A FINAL DAILY DOSE OF 1600 MG IN MARCH 2022
     Route: 065
  4. FENTANYL [Suspect]
     Active Substance: FENTANYL
     Indication: Pain
     Dosage: 50 G/H PATCH - 1 PATCH EVERY 3 DAYS
     Route: 062
  5. ETORICOXIB [Suspect]
     Active Substance: ETORICOXIB
     Indication: Pain
     Dosage: 2 X 90 MG FOR THE PAST 6 MONTHS
     Route: 065
  6. KETOPROFEN [Concomitant]
     Active Substance: KETOPROFEN
     Indication: Pain
     Dosage: 150 MILLIGRAM DAILY;
     Route: 065
  7. PREGABALIN [Concomitant]
     Active Substance: PREGABALIN
     Indication: Pain
     Dosage: 75 MILLIGRAM DAILY; 75 MG 1 X AT NIGHT
     Route: 065
  8. KETOPROFEN [Concomitant]
     Active Substance: KETOPROFEN
     Indication: Pain
     Dosage: 150 MILLIGRAM DAILY;
     Route: 065
  9. TRAZODONE [Concomitant]
     Active Substance: TRAZODONE HYDROCHLORIDE
     Indication: Pain
     Dosage: 75 MILLIGRAM DAILY; 75 MG AT BEDTIME
     Route: 065

REACTIONS (11)
  - Drug ineffective [Unknown]
  - Pain [Unknown]
  - Drug abuse [Recovered/Resolved]
  - Toxicity to various agents [Unknown]
  - Constipation [Recovered/Resolved]
  - Mental impairment [Recovering/Resolving]
  - Behaviour disorder [Unknown]
  - Cholinergic syndrome [Unknown]
  - Overdose [Unknown]
  - Treatment noncompliance [Unknown]
  - Product selection error [Unknown]
